FAERS Safety Report 6246351-X (Version None)
Quarter: 2009Q2

REPORT INFORMATION
  Report Type: 
  Country: None (occurrence: None)
  Receive Date: 20090626
  Receipt Date: 20090618
  Transmission Date: 20091009
  Serious: Yes (Hospitalization)
  Sender: FDA-Public Use
  Company Number: NL-ASTRAZENECA-2009SE02984

PATIENT
  Age: 27996 Day
  Sex: Female
  Weight: 70 kg

DRUGS (1)
  1. PRILOSEC [Suspect]
     Indication: DYSPEPSIA
     Route: 048
     Dates: start: 19800101

REACTIONS (2)
  - HYPOMAGNESAEMIA [None]
  - TETANY [None]
